FAERS Safety Report 9348264 (Version 4)
Quarter: 2013Q4

REPORT INFORMATION
  Report Type: Spontaneous
  Country: US (occurrence: US)
  Receive Date: 20130614
  Receipt Date: 20131212
  Transmission Date: 20140711
  Serious: Yes (Other)
  Sender: FDA-Public Use
  Company Number: US-PFIZER INC-2013177287

PATIENT
  Sex: Female

DRUGS (1)
  1. DILANTIN-125 [Suspect]
     Dosage: UNK

REACTIONS (9)
  - Aneurysm [Unknown]
  - Blindness [Unknown]
  - Road traffic accident [Unknown]
  - Head injury [Unknown]
  - Convulsion [Unknown]
  - Amnesia [Unknown]
  - Hypertension [Unknown]
  - Back pain [Unknown]
  - Arthritis [Unknown]
